FAERS Safety Report 14160124 (Version 1)
Quarter: 2017Q4

REPORT INFORMATION
  Report Type: Spontaneous
  Country: US (occurrence: US)
  Receive Date: 20171106
  Receipt Date: 20171106
  Transmission Date: 20180321
  Serious: Yes (Other)
  Sender: FDA-Public Use
  Company Number: US-CIPLA LTD.-2017US19040

PATIENT

DRUGS (6)
  1. ETOPOSIDE. [Suspect]
     Active Substance: ETOPOSIDE
     Dosage: 750 MG/M2, DAILY FOR 3 CONSECUTIVE DAYS
     Route: 065
  2. CISPLATIN. [Suspect]
     Active Substance: CISPLATIN
     Indication: OVARIAN GERM CELL TUMOUR MIXED
     Dosage: UNK
     Route: 065
  3. ETOPOSIDE. [Suspect]
     Active Substance: ETOPOSIDE
     Indication: OVARIAN GERM CELL TUMOUR MIXED
     Dosage: UNK
     Route: 065
  4. BLEOMYCIN [Suspect]
     Active Substance: BLEOMYCIN SULFATE
     Indication: OVARIAN GERM CELL TUMOUR MIXED
     Dosage: UNK
     Route: 065
  5. CARBOPLATIN. [Suspect]
     Active Substance: CARBOPLATIN
     Indication: OVARIAN GERM CELL TUMOUR MIXED
     Dosage: 700 MG/M2, DAILY FOR 3 CONSECUTIVE DAYS
     Route: 065
  6. ETOPOSIDE. [Suspect]
     Active Substance: ETOPOSIDE
     Dosage: 50 MG/M2, EVERY 21 DAYS
     Route: 048

REACTIONS (2)
  - Deafness [Recovered/Resolved]
  - Ovarian germ cell endodermal sinus tumour [Recovered/Resolved]
